FAERS Safety Report 13790367 (Version 1)
Quarter: 2017Q3

REPORT INFORMATION
  Report Type: Report from Study
  Country: US (occurrence: US)
  Receive Date: 20170725
  Receipt Date: 20170725
  Transmission Date: 20171127
  Serious: Yes (Other)
  Sender: FDA-Public Use
  Company Number: US-IPSEN BIOPHARMACEUTICALS, INC.-2017-01160

PATIENT
  Age: 49 Year
  Sex: Female
  Weight: 59.87 kg

DRUGS (4)
  1. SOMATULINE [Suspect]
     Active Substance: LANREOTIDE ACETATE
     Indication: HEPATIC CANCER
     Dosage: NOT REPORTED
     Route: 058
     Dates: start: 201609
  2. SOMATULINE [Suspect]
     Active Substance: LANREOTIDE ACETATE
     Indication: NEUROENDOCRINE TUMOUR
  3. LEXAPRO [Concomitant]
     Active Substance: ESCITALOPRAM OXALATE
  4. OMEPRAZOLE. [Concomitant]
     Active Substance: OMEPRAZOLE

REACTIONS (7)
  - Alopecia [Not Recovered/Not Resolved]
  - Accident [Unknown]
  - Stress [Not Recovered/Not Resolved]
  - Delirium tremens [Recovered/Resolved]
  - Feeling of despair [Not Recovered/Not Resolved]
  - Injection site pain [Not Recovered/Not Resolved]
  - Headache [Not Recovered/Not Resolved]

NARRATIVE: CASE EVENT DATE: 201610
